FAERS Safety Report 4478373-3 (Version None)
Quarter: 2004Q4

REPORT INFORMATION
  Report Type: 
  Country: None (occurrence: None)
  Receive Date: 20041018
  Receipt Date: 20041018
  Transmission Date: 20050328
  Serious: Yes (Other)
  Sender: FDA-Public Use
  Company Number: None

PATIENT
  Age: 63 Year
  Sex: Male
  Weight: 50.3 kg

DRUGS (1)
  1. PROMETHAZINE [Suspect]
     Dosage: 12.5 MG  Q6 HOURS INTRAVENOU
     Route: 042
     Dates: start: 20030829, end: 20040829

REACTIONS (2)
  - ANXIETY [None]
  - FEELING ABNORMAL [None]
